FAERS Safety Report 9935590 (Version 2)
Quarter: 2014Q1

REPORT INFORMATION
  Report Type: Spontaneous
  Country: US (occurrence: US)
  Receive Date: 20140228
  Receipt Date: 20140303
  Transmission Date: 20141002
  Serious: Yes (Other)
  Sender: FDA-Public Use
  Company Number: CHPA2014US002792

PATIENT
  Age: 63 Year
  Sex: Female

DRUGS (9)
  1. VOLTAREN GEL [Suspect]
     Indication: ARTHRITIS
     Dosage: ENOUGH TO COVER, 3-4X/DAY
     Route: 061
     Dates: start: 2013
  2. VOLTAREN GEL [Suspect]
     Indication: PAIN
  3. VOLTAREN GEL [Suspect]
     Indication: OFF LABEL USE
  4. IBUPROFEN [Suspect]
     Indication: PAIN
     Dosage: 200 MG, TID
     Route: 048
     Dates: start: 2004
  5. IBUPROFEN [Suspect]
     Indication: HEADACHE
  6. IBUPROFEN [Suspect]
     Indication: ARTHRITIS
  7. VOLTAREN [Suspect]
     Indication: ARTHRITIS
     Dosage: UNK, BID
     Dates: start: 2009
  8. VOLTAREN [Suspect]
     Indication: PAIN
  9. VICODIN [Concomitant]
     Indication: PAIN MANAGEMENT
     Dosage: UNK

REACTIONS (6)
  - Wrist fracture [Recovering/Resolving]
  - Contusion [Not Recovered/Not Resolved]
  - Inflammation [Not Recovered/Not Resolved]
  - Drug administration error [Unknown]
  - Underdose [Unknown]
  - Incorrect dose administered [Unknown]
